FAERS Safety Report 14283066 (Version 1)
Quarter: 2017Q4

REPORT INFORMATION
  Report Type: Spontaneous
  Country: US (occurrence: US)
  Receive Date: 20171213
  Receipt Date: 20171213
  Transmission Date: 20180321
  Serious: No
  Sender: FDA-Public Use
  Company Number: PHEH2017US038855

PATIENT
  Sex: Female
  Weight: 77.98 kg

DRUGS (2)
  1. CHOLESTYRAMINE FOR ORAL SUSPENSION USP [Suspect]
     Active Substance: CHOLESTYRAMINE
     Indication: ILL-DEFINED DISORDER
     Dosage: 4 MG, QID (3 TO 4 TIMES A DAY)
     Route: 048
  2. CHOLESTYRAMINE FOR ORAL SUSPENSION USP [Suspect]
     Active Substance: CHOLESTYRAMINE
     Dosage: 4 MG, TID
     Route: 048

REACTIONS (1)
  - Nausea [Not Recovered/Not Resolved]
